FAERS Safety Report 9304869 (Version 1)
Quarter: 2013Q2

REPORT INFORMATION
  Report Type: Spontaneous
  Country: US (occurrence: None)
  Receive Date: 20130521
  Receipt Date: 20130521
  Transmission Date: 20140414
  Serious: Yes (Other)
  Sender: FDA-Public Use
  Company Number: None

PATIENT
  Age: 28 Year
  Sex: Female
  Weight: 100 kg

DRUGS (6)
  1. PEGASYS PROCLICK [Suspect]
     Indication: HEPATITIS C
     Route: 058
     Dates: start: 20120928, end: 20130305
  2. RIBAPAK [Suspect]
     Indication: HEPATITIS C
     Dosage: 600 MG BID
     Route: 048
     Dates: start: 20120928, end: 20130311
  3. STRATTERA [Concomitant]
  4. VITAMIN D [Concomitant]
  5. VITAMIN A [Concomitant]
  6. TRAMADOL [Concomitant]

REACTIONS (1)
  - Exposure during pregnancy [None]
